FAERS Safety Report 8716502 (Version 2)
Quarter: 2012Q4

REPORT INFORMATION
  Report Type: 
  Country: US (occurrence: US)
  Receive Date: 20120810
  Receipt Date: 20120917
  Transmission Date: 20130627
  Serious: No
  Sender: FDA-Public Use
  Company Number: US-009507513-1208USA001580

PATIENT

DRUGS (2)
  1. ASMANEX TWISTHALER [Suspect]
     Indication: ASTHMA
     Dosage: 1 DF, qd
  2. ASMANEX TWISTHALER [Suspect]
     Dosage: 2 DF, qd

REACTIONS (3)
  - Dyspnoea [Recovered/Resolved]
  - Drug ineffective [Unknown]
  - Product quality issue [Unknown]
